FAERS Safety Report 6788029-X (Version None)
Quarter: 2010Q2

REPORT INFORMATION
  Report Type: 
  Country: None (occurrence: None)
  Receive Date: 20100623
  Receipt Date: 20080108
  Transmission Date: 20101027
  Serious: No
  Sender: FDA-Public Use
  Company Number: US-PFIZER INC-2007100917

PATIENT
  Sex: Female
  Weight: 76.66 kg

DRUGS (1)
  1. DEPO-SUBQ PROVERA 104 [Suspect]
     Dates: start: 20071126

REACTIONS (3)
  - DRUG ADMINISTERED AT INAPPROPRIATE SITE [None]
  - INJECTION SITE ERYTHEMA [None]
  - INJECTION SITE INDURATION [None]
